FAERS Safety Report 10224435 (Version 1)
Quarter: 2014Q2

REPORT INFORMATION
  Report Type: Spontaneous
  Country: US (occurrence: US)
  Receive Date: 20140609
  Receipt Date: 20140609
  Transmission Date: 20141212
  Serious: No
  Sender: FDA-Public Use
  Company Number: US-PFIZER INC-2014155545

PATIENT
  Age: 57 Year
  Sex: Male
  Weight: 68.03 kg

DRUGS (1)
  1. DILANTIN [Suspect]
     Indication: CONVULSION
     Dosage: 100 MG, 5X/DAY
     Route: 048
     Dates: start: 20140107

REACTIONS (1)
  - Anticonvulsant drug level increased [Unknown]
